FAERS Safety Report 23226171 (Version 1)
Quarter: 2023Q4

REPORT INFORMATION
  Report Type: Spontaneous
  Country: US (occurrence: US)
  Receive Date: 20231124
  Receipt Date: 20231124
  Transmission Date: 20240110
  Serious: Yes (Other)
  Sender: FDA-Public Use
  Company Number: US-BEH-2023165660

PATIENT
  Age: 56 Year
  Sex: Female

DRUGS (60)
  1. HIZENTRA [Suspect]
     Active Substance: HUMAN IMMUNOGLOBULIN G
     Indication: Immunodeficiency
     Dosage: 12 GRAM, QW
     Route: 058
     Dates: start: 20220604
  2. ACETAZOLAMIDE [Concomitant]
     Active Substance: ACETAZOLAMIDE
  3. ASPIRIN [Concomitant]
     Active Substance: ASPIRIN
  4. AZITHROMYCIN MONOHYDRATE [Concomitant]
     Active Substance: AZITHROMYCIN MONOHYDRATE
  5. BENZONATATE [Concomitant]
     Active Substance: BENZONATATE
  6. BETAMETASON [BETAMETHASONE SODIUM PHOSPHATE] [Concomitant]
  7. BETAMETHASONE DIPROPIONATE [Concomitant]
     Active Substance: BETAMETHASONE DIPROPIONATE
  8. BUDESONIDE [Concomitant]
     Active Substance: BUDESONIDE
  9. CLARITHROMYCIN [Concomitant]
     Active Substance: CLARITHROMYCIN
  10. CLOTRIMAZOLE [Concomitant]
     Active Substance: CLOTRIMAZOLE
  11. CODEINE [Concomitant]
     Active Substance: CODEINE
  12. CORLANOR [Concomitant]
     Active Substance: IVABRADINE HYDROCHLORIDE
  13. CRESTOR [Concomitant]
     Active Substance: ROSUVASTATIN CALCIUM
  14. DAPSONE [Concomitant]
     Active Substance: DAPSONE
  15. DEPO-MEDROL [Concomitant]
     Active Substance: METHYLPREDNISOLONE ACETATE
  16. DULERA [Concomitant]
     Active Substance: FORMOTEROL FUMARATE DIHYDRATE\MOMETASONE FUROATE
  17. EMGALITY [Concomitant]
     Active Substance: GALCANEZUMAB-GNLM
  18. EZETIMIBE [Concomitant]
     Active Substance: EZETIMIBE
  19. FASENRA [Concomitant]
     Active Substance: BENRALIZUMAB
  20. FOLIC ACID [Concomitant]
     Active Substance: FOLIC ACID
  21. FUROSEMIDE [Concomitant]
     Active Substance: FUROSEMIDE
  22. HISTEX DM [Concomitant]
     Active Substance: DEXTROMETHORPHAN HYDROBROMIDE\PHENYLEPHRINE HYDROCHLORIDE\TRIPROLIDINE HYDROCHLORIDE
  23. HUMIRA [Concomitant]
     Active Substance: ADALIMUMAB
  24. HYDROCODONE [Concomitant]
     Active Substance: HYDROCODONE
  25. HYDROCHLOROTHIAZIDE [Concomitant]
     Active Substance: HYDROCHLOROTHIAZIDE
  26. HYDROCODONE BITARTRATE AND ACETAMINOPHEN [Concomitant]
     Active Substance: ACETAMINOPHEN\HYDROCODONE BITARTRATE
  27. HYDROXYZINUM ZENTIVA [Concomitant]
  28. IPRATROPIUM [Concomitant]
     Active Substance: IPRATROPIUM
  29. ISOSORBIDE MONONITRATE [Concomitant]
     Active Substance: ISOSORBIDE MONONITRATE
  30. JANUVIA [Concomitant]
     Active Substance: SITAGLIPTIN PHOSPHATE
  31. KENALOG [Concomitant]
     Active Substance: TRIAMCINOLONE ACETONIDE
  32. CLARITHROMYCIN [Concomitant]
     Active Substance: CLARITHROMYCIN
  33. MESTINON [Concomitant]
     Active Substance: PYRIDOSTIGMINE BROMIDE
  34. METHOCARBAMOL [Concomitant]
     Active Substance: METHOCARBAMOL
  35. METHOTREXATE [Concomitant]
     Active Substance: METHOTREXATE
  36. MIRAPEX [Concomitant]
     Active Substance: PRAMIPEXOLE DIHYDROCHLORIDE
  37. MOTEGRITY [Concomitant]
     Active Substance: PRUCALOPRIDE SUCCINATE
  38. NITROGLYCERIN [Concomitant]
     Active Substance: NITROGLYCERIN
  39. NORTRIPTYLINE [Concomitant]
     Active Substance: NORTRIPTYLINE
  40. NYSTATIN [Concomitant]
     Active Substance: NYSTATIN
  41. POTASSIUM CHLORIDE [Concomitant]
     Active Substance: POTASSIUM CHLORIDE
  42. PRAMIPEXOLE [Concomitant]
     Active Substance: PRAMIPEXOLE
  43. PREDNISONE [Concomitant]
     Active Substance: PREDNISONE
  44. OMEPRAZOLE [Concomitant]
     Active Substance: OMEPRAZOLE
  45. QVAR REDIHALER [Concomitant]
     Active Substance: BECLOMETHASONE DIPROPIONATE
  46. ROSUVASTATIN [Concomitant]
     Active Substance: ROSUVASTATIN
  47. SINGULAIR [Concomitant]
     Active Substance: MONTELUKAST SODIUM
  48. SPIRIVA [Concomitant]
     Active Substance: TIOTROPIUM BROMIDE MONOHYDRATE
  49. SPIRONOLACTONE [Concomitant]
     Active Substance: SPIRONOLACTONE
  50. TIZANIDINE [Concomitant]
     Active Substance: TIZANIDINE
  51. UBRELVY [Concomitant]
     Active Substance: UBROGEPANT
  52. VERAPAMIL [Concomitant]
     Active Substance: VERAPAMIL HYDROCHLORIDE
  53. VITAMIN D NOS [Concomitant]
     Active Substance: VITAMIN D NOS
  54. WARFARIN [Concomitant]
     Active Substance: WARFARIN
  55. XELJANZ XR [Concomitant]
     Active Substance: TOFACITINIB CITRATE
  56. XOPENEX [Concomitant]
     Active Substance: LEVALBUTEROL HYDROCHLORIDE
  57. ZETIA [Concomitant]
     Active Substance: EZETIMIBE
  58. ZOFRAN [Concomitant]
     Active Substance: ONDANSETRON HYDROCHLORIDE
  59. ZONEGRAN [Concomitant]
     Active Substance: ZONISAMIDE
  60. ZONISAMIDE [Concomitant]
     Active Substance: ZONISAMIDE

REACTIONS (4)
  - Drug ineffective [Not Recovered/Not Resolved]
  - Pain [Not Recovered/Not Resolved]
  - Fatigue [Not Recovered/Not Resolved]
  - Alopecia [Not Recovered/Not Resolved]

NARRATIVE: CASE EVENT DATE: 20231001
